FAERS Safety Report 25949482 (Version 2)
Quarter: 2025Q4

REPORT INFORMATION
  Report Type: Spontaneous
  Country: US (occurrence: US)
  Receive Date: 20251022
  Receipt Date: 20251113
  Transmission Date: 20260117
  Serious: Yes (Life-Threatening, Other)
  Sender: BRACCO
  Company Number: US-BRACCO-2025US07195

PATIENT
  Age: 47 Year
  Sex: Male

DRUGS (5)
  1. LUMASON [Suspect]
     Active Substance: SULFUR HEXAFLUORIDE
     Indication: Echocardiogram
     Dosage: 2 ML GIVEN OF 8 ML DILUTED LUMASON
     Route: 040
     Dates: start: 20251018, end: 20251018
  2. LUMASON [Suspect]
     Active Substance: SULFUR HEXAFLUORIDE
     Indication: Echocardiogram
     Dosage: 2 ML GIVEN OF 8 ML DILUTED LUMASON
     Route: 040
     Dates: start: 20251018, end: 20251018
  3. LUMASON [Suspect]
     Active Substance: SULFUR HEXAFLUORIDE
     Indication: Echocardiogram
     Dosage: 2 ML GIVEN OF 8 ML DILUTED LUMASON
     Route: 040
     Dates: start: 20251018, end: 20251018
  4. ASPIRIN [Concomitant]
     Active Substance: ASPIRIN
  5. SALINE [Concomitant]
     Active Substance: SODIUM CHLORIDE
     Dosage: 5 ML, SINGLE
     Route: 042
     Dates: start: 20251018, end: 20251018

REACTIONS (4)
  - Hypersensitivity [Recovered/Resolved]
  - Loss of consciousness [Recovered/Resolved]
  - Seizure [Recovered/Resolved]
  - Fall [Recovered/Resolved]

NARRATIVE: CASE EVENT DATE: 20251018
